FAERS Safety Report 4286592-4 (Version None)
Quarter: 2004Q1

REPORT INFORMATION
  Report Type: 
  Country: None (occurrence: None)
  Receive Date: 20040204
  Receipt Date: 20040121
  Transmission Date: 20041129
  Serious: Yes (Other)
  Sender: FDA-Public Use
  Company Number: BR-SHR-04-020092

PATIENT
  Age: 50 Year
  Sex: Female

DRUGS (4)
  1. PRIMOLUT NOR(NORETHISTERONE ACETATE) [Suspect]
     Indication: UTERINE LEIOMYOMA
     Dosage: 1 TAB(S), ORAL
     Route: 048
     Dates: start: 20010101, end: 20030101
  2. MIRENA [Suspect]
     Indication: UTERINE LEIOMYOMA
     Dosage: 20 UG/DAY, CONT, INTRA-UTERINE
     Route: 015
     Dates: start: 20031208
  3. FLUCONAZOLE [Concomitant]
  4. FERROUS SULFATE TAB [Concomitant]

REACTIONS (6)
  - ANAEMIA [None]
  - BLOOD PRESSURE INCREASED [None]
  - OEDEMA PERIPHERAL [None]
  - PRURITUS [None]
  - TACHYCARDIA [None]
  - VAGINAL HAEMORRHAGE [None]
